FAERS Safety Report 5346436-6 (Version None)
Quarter: 2007Q2

REPORT INFORMATION
  Report Type: 
  Country: None (occurrence: None)
  Receive Date: 20070426
  Receipt Date: 20060825
  Transmission Date: 20071010
  Serious: Yes (Hospitalization)
  Sender: FDA-Public Use
  Company Number: US-JNJFOC-20060801201

PATIENT
  Age: 84 Year
  Sex: Female
  Weight: 64.4108 kg

DRUGS (7)
  1. ULTRAM [Suspect]
     Indication: ARTHRITIS
     Dates: start: 20060501, end: 20060701
  2. ULTRAM [Suspect]
     Indication: FIBROMYALGIA
     Dates: start: 20060501, end: 20060701
  3. ULTRAM [Suspect]
     Indication: PAIN
     Dates: start: 20060501, end: 20060701
  4. ULTRAM ER [Suspect]
     Indication: BACK PAIN
     Dosage: 300 MG, 1 IN 1 DAY, ORAL
     Route: 048
     Dates: start: 20060701, end: 20060807
  5. SYNTHROID [Concomitant]
  6. LANOXIN [Concomitant]
  7. ARIMIDEX (ANASTRAZOLE) [Concomitant]

REACTIONS (7)
  - AGGRESSION [None]
  - DELUSION [None]
  - HALLUCINATION, AUDITORY [None]
  - HALLUCINATION, VISUAL [None]
  - INSOMNIA [None]
  - THERAPEUTIC RESPONSE DECREASED [None]
  - URINARY TRACT INFECTION [None]
